FAERS Safety Report 10996607 (Version 6)
Quarter: 2019Q3

REPORT INFORMATION
  Report Type: Report from Study
  Country: HU (occurrence: HU)
  Receive Date: 20150408
  Receipt Date: 20190724
  Transmission Date: 20191004
  Serious: Yes (Hospitalization)
  Sender: FDA-Public Use
  Company Number: HU-UCBSA-2015010019

PATIENT
  Age: 60 Year
  Sex: Male
  Weight: 98 kg

DRUGS (3)
  1. CERTOLIZUMAB PEGOL VS PLACEBO [Suspect]
     Active Substance: CERTOLIZUMAB PEGOL
     Indication: PSORIATIC ARTHROPATHY
     Dosage: 200 MG, NO. OF DOSES RECEIVED: 106
     Route: 058
     Dates: start: 20110207
  2. VITAMIN B12 [Concomitant]
     Active Substance: CYANOCOBALAMIN
     Indication: PERNICIOUS ANAEMIA
     Dosage: 30 MG, MONTHLY (QM)
     Route: 030
     Dates: start: 200411
  3. FOLIC ACID. [Concomitant]
     Active Substance: FOLIC ACID
     Indication: PERNICIOUS ANAEMIA
     Dosage: 3 MG, ONCE DAILY (QD)
     Route: 048
     Dates: start: 200411

REACTIONS (1)
  - Gastrointestinal cancer metastatic [Recovered/Resolved with Sequelae]

NARRATIVE: CASE EVENT DATE: 20150225
